FAERS Safety Report 20092039 (Version 1)
Quarter: 2021Q4

REPORT INFORMATION
  Report Type: Spontaneous
  Country: SI (occurrence: SI)
  Receive Date: 20211119
  Receipt Date: 20211119
  Transmission Date: 20220303
  Serious: Yes (Other)
  Sender: FDA-Public Use
  Company Number: SI-002147023-NVSC2021SI202718

PATIENT
  Sex: Male

DRUGS (5)
  1. IMATINIB [Suspect]
     Active Substance: IMATINIB
     Indication: Chronic myeloid leukaemia
     Dosage: 800 MILLIGRAM, QD
     Route: 065
     Dates: start: 20100623
  2. IMATINIB [Suspect]
     Active Substance: IMATINIB
     Dosage: 400 MILLIGRAM, QD
     Route: 065
     Dates: end: 20100623
  3. IMATINIB [Suspect]
     Active Substance: IMATINIB
     Dosage: 300 UNK
     Route: 065
     Dates: start: 20120215
  4. NILOTINIB [Suspect]
     Active Substance: NILOTINIB
     Indication: Chronic myeloid leukaemia
     Dosage: 300 MILLIGRAM, QD
     Route: 065
     Dates: start: 20120523, end: 20190515
  5. NILOTINIB [Suspect]
     Active Substance: NILOTINIB
     Dosage: 400 UNK
     Route: 065
     Dates: start: 20200128

REACTIONS (4)
  - Philadelphia chromosome positive [Unknown]
  - Rash [Unknown]
  - Dyspepsia [Unknown]
  - Gynaecomastia [Unknown]

NARRATIVE: CASE EVENT DATE: 20100623
